FAERS Safety Report 7767839-6 (Version None)
Quarter: 2011Q3

REPORT INFORMATION
  Report Type: 
  Country: None (occurrence: None)
  Receive Date: 20110922
  Receipt Date: 20100809
  Transmission Date: 20111222
  Serious: No
  Sender: FDA-Public Use
  Company Number: US-ASTRAZENECA-2008UW01122

PATIENT
  Age: 598 Month
  Sex: Male

DRUGS (17)
  1. SEROQUEL [Suspect]
     Indication: DEPRESSION
     Dosage: 200-1000 MG
     Route: 048
     Dates: start: 19980202, end: 20050317
  2. ATENOLOL [Concomitant]
     Dates: start: 20030923
  3. LISINOPRIL [Concomitant]
     Dates: start: 20070130
  4. LOPID [Concomitant]
     Dates: start: 20070501
  5. PRILOSEC [Concomitant]
     Dates: start: 20070430
  6. SEROQUEL [Suspect]
     Route: 048
     Dates: start: 20061121
  7. CLONIDINE HCL [Concomitant]
     Dates: start: 20030923
  8. LIPITOR [Concomitant]
     Dosage: 20 QD
     Dates: start: 20070130
  9. SEROQUEL [Suspect]
     Indication: ANXIETY
     Dosage: 200-1000 MG
     Route: 048
     Dates: start: 19980202, end: 20050317
  10. HALDOL [Concomitant]
  11. SEROQUEL [Suspect]
     Dosage: 200 MG TO 1000 MG
     Route: 048
     Dates: start: 19981101, end: 20061121
  12. SEROQUEL [Suspect]
     Route: 048
     Dates: start: 20061121
  13. ASPIRIN [Concomitant]
     Dosage: QD
     Dates: start: 20070430
  14. SEROQUEL [Suspect]
     Dosage: 200 MG TO 1000 MG
     Route: 048
     Dates: start: 19981101, end: 20061121
  15. WYTENSIN [Concomitant]
     Dosage: 20/25 QD
     Dates: start: 20030808
  16. THORAZINE [Concomitant]
  17. TOPROL-XL [Concomitant]
     Dosage: 50 QD
     Dates: start: 20030808

REACTIONS (8)
  - BLOOD CHOLESTEROL INCREASED [None]
  - TYPE 2 DIABETES MELLITUS [None]
  - DIABETES MELLITUS INADEQUATE CONTROL [None]
  - DIABETIC COMPLICATION [None]
  - HYPERLIPIDAEMIA [None]
  - DIABETES MELLITUS [None]
  - ADVERSE DRUG REACTION [None]
  - BLOOD TRIGLYCERIDES INCREASED [None]
